FAERS Safety Report 16860514 (Version 3)
Quarter: 2019Q4

REPORT INFORMATION
  Report Type: Spontaneous
  Country: RO (occurrence: RO)
  Receive Date: 20190927
  Receipt Date: 20191210
  Transmission Date: 20200122
  Serious: Yes (Other)
  Sender: FDA-Public Use
  Company Number: RO-AUROBINDO-AUR-APL-2019-062584

PATIENT
  Age: 77 Year
  Sex: Female

DRUGS (9)
  1. TERTENSIF [Concomitant]
     Active Substance: INDAPAMIDE
     Indication: PRODUCT USED FOR UNKNOWN INDICATION
     Dosage: UNK
     Route: 065
  2. SERMION [Concomitant]
     Active Substance: NICERGOLINE
     Indication: PRODUCT USED FOR UNKNOWN INDICATION
     Dosage: 30 MILLIGRAM
     Route: 065
  3. TAMSULOSIN [Suspect]
     Active Substance: TAMSULOSIN
     Dosage: 1 DOSAGE FORM, ONCE A DAY (ONCE DAILY AT LUNCH TIME)
     Route: 048
     Dates: start: 20190731
  4. ASPENTER [Concomitant]
     Active Substance: ASPIRIN
     Indication: PRODUCT USED FOR UNKNOWN INDICATION
     Dosage: UNK
     Route: 065
  5. SOLIFENACIN [Suspect]
     Active Substance: SOLIFENACIN
     Indication: DYSURIA
     Dosage: 1 DOSAGE FORM, ONCE A DAY (ONCE DAILY (AT NIGHT), VESICARE DOSAGE1)
     Route: 048
     Dates: start: 20190721, end: 20190730
  6. TAMSULOSIN [Suspect]
     Active Substance: TAMSULOSIN
     Indication: DYSURIA
     Dosage: 1 DOSAGE FORM, ONCE A DAY (ONCE DAILY AT NIGHT, OMNIC TOCAS. DISCONTINUED ON 20-JUL-2019)
     Route: 048
     Dates: start: 201810, end: 20190720
  7. AERIUS [Concomitant]
     Indication: PRODUCT USED FOR UNKNOWN INDICATION
     Dosage: UNK
     Route: 065
  8. SIMVACARD [Concomitant]
     Active Substance: SIMVASTATIN
     Indication: PRODUCT USED FOR UNKNOWN INDICATION
     Dosage: 20 MILLIGRAM
     Route: 065
  9. BETASERC [Concomitant]
     Active Substance: BETAHISTINE
     Indication: PRODUCT USED FOR UNKNOWN INDICATION
     Dosage: UNK
     Route: 065

REACTIONS (3)
  - Urinary retention [Recovered/Resolved]
  - Urinary tract obstruction [Recovered/Resolved]
  - Product use issue [Unknown]

NARRATIVE: CASE EVENT DATE: 201810
